FAERS Safety Report 7867533-7 (Version None)
Quarter: 2011Q4

REPORT INFORMATION
  Report Type: 
  Country: None (occurrence: None)
  Receive Date: 20111028
  Receipt Date: 20111021
  Transmission Date: 20120403
  Serious: Yes (Death, Other)
  Sender: FDA-Public Use
  Company Number: PHEH2011US06101

PATIENT
  Sex: Female
  Weight: 58 kg

DRUGS (7)
  1. FUROSEMIDE [Concomitant]
     Indication: ASCITES
     Dosage: 80 MG, UNK
     Route: 048
     Dates: start: 20110401
  2. SPIRONOLACTONE [Concomitant]
     Indication: ASCITES
  3. LEVOTHYROXINE SODIUM [Concomitant]
     Indication: HYPOTHYROIDISM
     Dosage: 25 UG, BID
     Route: 048
     Dates: start: 20020101
  4. HUMULIN N [Concomitant]
     Indication: DIABETES MELLITUS
     Dates: start: 20020101
  5. AFINITOR [Suspect]
     Indication: PANCREATIC NEUROENDOCRINE TUMOUR
     Dosage: 10 MG, DAILY
     Route: 048
     Dates: start: 20110218
  6. METFORMIN [Concomitant]
     Indication: DIABETES MELLITUS
     Dosage: 500 MG, UNK
     Dates: start: 20100212
  7. SANDOSTATIN LAR [Suspect]
     Indication: PANCREATIC NEUROENDOCRINE TUMOUR
     Dosage: 30 MG, QMO
     Route: 030
     Dates: start: 20091023

REACTIONS (7)
  - ASPARTATE AMINOTRANSFERASE INCREASED [None]
  - BLOOD UREA INCREASED [None]
  - BLOOD CREATININE INCREASED [None]
  - NEOPLASM MALIGNANT [None]
  - NEOPLASM PROGRESSION [None]
  - COMA [None]
  - ALANINE AMINOTRANSFERASE INCREASED [None]
